FAERS Safety Report 13303203 (Version 2)
Quarter: 2017Q1

REPORT INFORMATION
  Report Type: Spontaneous
  Country: FR (occurrence: FR)
  Receive Date: 20170307
  Receipt Date: 20170314
  Transmission Date: 20170428
  Serious: Yes (Congenital Anomaly)
  Sender: FDA-Public Use
  Company Number: FR-TEVA-746700ISR

PATIENT

DRUGS (1)
  1. IMATINIB [Suspect]
     Active Substance: IMATINIB
     Route: 050

REACTIONS (4)
  - Maternal exposure before pregnancy [Unknown]
  - Cardiomyopathy neonatal [Unknown]
  - Exposure via father [Unknown]
  - Live birth [Unknown]
